FAERS Safety Report 9503654 (Version 1)
Quarter: 2013Q1

REPORT INFORMATION
  Report Type: Spontaneous
  Country: US (occurrence: None)
  Receive Date: 20130107
  Receipt Date: 20130107
  Transmission Date: 20140127
  Serious: No
  Sender: FDA-Public Use
  Company Number: PHEH2012US020310

PATIENT
  Sex: Female
  Weight: 77.1 kg

DRUGS (8)
  1. GILENYA (FINGOLIMOD) CAPSULE, 0.5MG [Suspect]
     Indication: MULTIPLE SCLEROSIS
     Route: 048
     Dates: start: 201203, end: 201209
  2. RITALIN (METHYLPHENIDATE HYDROCHLORIDE) [Suspect]
  3. NEUROTRONIN (GABPENTIN) [Concomitant]
  4. FENTANYL (FENTANYL) [Concomitant]
  5. BACLOFEN (BACLOFEN) [Concomitant]
  6. SYNTHROID (LEVOTHYROXINE SODIUM) [Concomitant]
  7. METOPROLOL (METOPROLOL) [Concomitant]
  8. SEROQUEL (QUENTIAPINE FUMARATE) [Concomitant]

REACTIONS (2)
  - Nausea [None]
  - Multiple sclerosis relapse [None]
